FAERS Safety Report 4685887-X (Version None)
Quarter: 2005Q2

REPORT INFORMATION
  Report Type: 
  Country: None (occurrence: None)
  Receive Date: 20050606
  Receipt Date: 20050527
  Transmission Date: 20051028
  Serious: Yes (Hospitalization)
  Sender: FDA-Public Use
  Company Number: 232188K05USA

PATIENT
  Age: 43 Year
  Sex: Female

DRUGS (3)
  1. REBIF [Suspect]
     Indication: MULTIPLE SCLEROSIS
     Dosage: SEE IMAGE
     Route: 058
     Dates: start: 20030718
  2. ALL OTHER THERAPEUTIC PRODUCTS [Concomitant]
  3. ASPIRIN [Concomitant]

REACTIONS (4)
  - FEELING ABNORMAL [None]
  - HEPATOTOXICITY [None]
  - LETHARGY [None]
  - VOMITING [None]
